FAERS Safety Report 4816408-6 (Version None)
Quarter: 2005Q4

REPORT INFORMATION
  Report Type: 
  Country: None (occurrence: None)
  Receive Date: 20051028
  Receipt Date: 20051013
  Transmission Date: 20060501
  Serious: Yes (Hospitalization)
  Sender: FDA-Public Use
  Company Number: S05-FRA-03867-01

PATIENT
  Age: 89 Year
  Sex: Male

DRUGS (8)
  1. CITALOPRAM HYDROBROMIDE [Suspect]
     Dosage: 1 QD PO
     Route: 048
  2. XANAX [Suspect]
     Dosage: 0.25 MG BID PO
     Route: 048
  3. TIAPRIDAL (TIAPRIDE) [Suspect]
     Dosage: 30 DROPS QD PO
     Route: 048
     Dates: start: 20050601
  4. AMLODIPINE BESYLATE [Suspect]
     Dosage: 10 MG QD PO
     Route: 048
  5. MEDIATENSYL (URAPIDIL) [Suspect]
     Dosage: 1 QD
  6. PLAVIX [Concomitant]
  7. FUROSEMIDE [Concomitant]
  8. DISCOTRINE (GLYCERYL TRINITRATE) [Concomitant]

REACTIONS (3)
  - BLOOD CREATININE INCREASED [None]
  - DYSKINESIA [None]
  - TREMOR [None]
